FAERS Safety Report 14661308 (Version 4)
Quarter: 2018Q4

REPORT INFORMATION
  Report Type: Report from Study
  Country: US (occurrence: US)
  Receive Date: 20180320
  Receipt Date: 20181001
  Transmission Date: 20190204
  Serious: No
  Sender: FDA-Public Use
  Company Number: PHEH2018US010823

PATIENT
  Sex: Female

DRUGS (1)
  1. COSENTYX [Suspect]
     Active Substance: SECUKINUMAB
     Indication: PRODUCT USED FOR UNKNOWN INDICATION
     Dosage: 300 MG, QMO
     Route: 065

REACTIONS (7)
  - Feeling abnormal [Unknown]
  - Pain [Unknown]
  - Dry mouth [Unknown]
  - Condition aggravated [Unknown]
  - Underdose [Unknown]
  - Wrong technique in product usage process [Unknown]
  - Malaise [Unknown]
